FAERS Safety Report 9413425 (Version 2)
Quarter: 2017Q1

REPORT INFORMATION
  Report Type: Report from Study
  Country: US (occurrence: US)
  Receive Date: 20130722
  Receipt Date: 20170120
  Transmission Date: 20170429
  Serious: Yes (Hospitalization, Other)
  Sender: FDA-Public Use
  Company Number: US-CELGENEUS-163-21660-13072049

PATIENT

DRUGS (9)
  1. TRASTUZUMAB [Suspect]
     Active Substance: TRASTUZUMAB
     Dosage: 2-4 MG/KG
     Route: 065
  2. DOXORUBICIN [Concomitant]
     Active Substance: DOXORUBICIN
     Indication: CHEMOTHERAPY
     Route: 065
  3. ABRAXANE [Suspect]
     Active Substance: PACLITAXEL
     Dosage: 89 MILLIGRAM/SQ. METER
     Route: 041
  4. ABRAXANE [Suspect]
     Active Substance: PACLITAXEL
     Indication: BREAST CANCER
     Dosage: 100 MILLIGRAM/SQ. METER
     Route: 041
  5. PRBC [Concomitant]
     Indication: PRODUCT USED FOR UNKNOWN INDICATION
     Route: 065
  6. ABRAXANE [Suspect]
     Active Substance: PACLITAXEL
     Dosage: 80 MILLIGRAM/SQ. METER
     Route: 041
  7. CARBOPLATIN. [Suspect]
     Active Substance: CARBOPLATIN
     Indication: BREAST CANCER
     Dosage: AUC 6
     Route: 065
  8. CYCLOPHOSPHAMIDE. [Concomitant]
     Active Substance: CYCLOPHOSPHAMIDE
     Indication: CHEMOTHERAPY
     Route: 065
  9. TRASTUZUMAB [Suspect]
     Active Substance: TRASTUZUMAB
     Indication: BREAST CANCER
     Dosage: 6 MILLIGRAM/KILOGRAM
     Route: 041

REACTIONS (18)
  - Leukopenia [Unknown]
  - Breast cancer metastatic [Unknown]
  - Fatigue [Unknown]
  - Infection [Unknown]
  - Nausea [Unknown]
  - Thrombosis [Unknown]
  - Ejection fraction decreased [Recovered/Resolved]
  - Thrombocytopenia [Unknown]
  - Sepsis [Unknown]
  - Neutrophil count decreased [Unknown]
  - Dehydration [Unknown]
  - Febrile neutropenia [Unknown]
  - Hypokalaemia [Unknown]
  - Anaemia [Unknown]
  - Diarrhoea [Unknown]
  - Neuropathy peripheral [Unknown]
  - Vomiting [Unknown]
  - Neurotoxicity [Unknown]
